FAERS Safety Report 10791822 (Version 1)
Quarter: 2015Q1

REPORT INFORMATION
  Report Type: Spontaneous
  Country: US (occurrence: US)
  Receive Date: 20150213
  Receipt Date: 20150213
  Transmission Date: 20150721
  Serious: No
  Sender: FDA-Public Use
  Company Number: US-GLAXOSMITHKLINE-A1090635A

PATIENT

DRUGS (9)
  1. VENTOLIN [Suspect]
     Active Substance: ALBUTEROL SULFATE
     Indication: CHRONIC OBSTRUCTIVE PULMONARY DISEASE
     Route: 055
  2. MTX [Concomitant]
     Active Substance: METHOTREXATE SODIUM
  3. PREDNISONE. [Concomitant]
     Active Substance: PREDNISONE
  4. VITAMIN D [Concomitant]
     Active Substance: CHOLECALCIFEROL
  5. NEBULIZER [Concomitant]
     Active Substance: UNSPECIFIED INGREDIENT
  6. SYMBICORT [Concomitant]
     Active Substance: BUDESONIDE\FORMOTEROL FUMARATE DIHYDRATE
  7. VENTOLIN [Suspect]
     Active Substance: ALBUTEROL SULFATE
  8. VENTOLIN [Suspect]
     Active Substance: ALBUTEROL SULFATE
  9. VITAMINS [Concomitant]
     Active Substance: VITAMINS

REACTIONS (3)
  - Dyspnoea [Unknown]
  - Cough [Unknown]
  - Expired product administered [Unknown]
